FAERS Safety Report 23415752 (Version 1)
Quarter: 2024Q1

REPORT INFORMATION
  Report Type: Spontaneous
  Country: US (occurrence: None)
  Receive Date: 20240118
  Receipt Date: 20240118
  Transmission Date: 20240410
  Serious: No
  Sender: FDA-Public Use
  Company Number: 2024A010577

PATIENT
  Sex: Female

DRUGS (1)
  1. FARXIGA [Suspect]
     Active Substance: DAPAGLIFLOZIN PROPANEDIOL
     Indication: IgA nephropathy
     Dosage: 10.0MG ONCE/SINGLE ADMINISTRATION
     Route: 048

REACTIONS (1)
  - Dizziness [Unknown]
